FAERS Safety Report 7478505-9 (Version None)
Quarter: 2011Q2

REPORT INFORMATION
  Report Type: 
  Country: None (occurrence: None)
  Receive Date: 20110513
  Receipt Date: 20110504
  Transmission Date: 20111010
  Serious: Yes (Other)
  Sender: FDA-Public Use
  Company Number: PHHY2011US39001

PATIENT
  Age: 28 Year
  Sex: Female
  Weight: 56.689 kg

DRUGS (1)
  1. GILENYA [Suspect]
     Dosage: 0.5 MG, QD
     Route: 048
     Dates: start: 20110504, end: 20110504

REACTIONS (5)
  - ASTHENIA [None]
  - VISION BLURRED [None]
  - BLOOD PRESSURE DECREASED [None]
  - DIZZINESS [None]
  - SENSATION OF HEAVINESS [None]
